FAERS Safety Report 13908331 (Version 1)
Quarter: 2017Q3

REPORT INFORMATION
  Report Type: Spontaneous
  Country: US (occurrence: US)
  Receive Date: 20170826
  Receipt Date: 20170826
  Transmission Date: 20171127
  Serious: No
  Sender: FDA-Public Use
  Company Number: US-AMGEN-USASP2017125722

PATIENT
  Sex: Female

DRUGS (5)
  1. ENBREL [Suspect]
     Active Substance: ETANERCEPT
     Indication: PRODUCT USED FOR UNKNOWN INDICATION
     Dosage: UNK
     Route: 065
  2. VENLAFAXINE [Suspect]
     Active Substance: VENLAFAXINE HYDROCHLORIDE
     Indication: PRODUCT USED FOR UNKNOWN INDICATION
     Dosage: 37.5 MG, BID
     Route: 065
  3. ATORVASTATIN [Suspect]
     Active Substance: ATORVASTATIN
     Indication: PRODUCT USED FOR UNKNOWN INDICATION
     Dosage: 80 MG, DAILY
     Route: 065
  4. XELJANZ [Suspect]
     Active Substance: TOFACITINIB CITRATE
     Indication: PRODUCT USED FOR UNKNOWN INDICATION
     Dosage: 5 MG, BID
     Route: 065
  5. MTX [Suspect]
     Active Substance: METHOTREXATE SODIUM
     Indication: PRODUCT USED FOR UNKNOWN INDICATION
     Dosage: UNK
     Route: 065

REACTIONS (25)
  - Liver function test abnormal [Unknown]
  - Depression [Unknown]
  - Anti-cyclic citrullinated peptide antibody [Unknown]
  - Sinusitis [Unknown]
  - Alanine aminotransferase increased [Unknown]
  - Synovitis [Unknown]
  - Gait disturbance [Unknown]
  - Blood alkaline phosphatase increased [Unknown]
  - Visual impairment [Unknown]
  - Joint swelling [Unknown]
  - Joint range of motion decreased [Unknown]
  - Liver function test increased [Unknown]
  - Aspartate aminotransferase increased [Unknown]
  - Treatment failure [Unknown]
  - Protein total decreased [Unknown]
  - Blood creatinine decreased [Unknown]
  - Tooth fracture [Unknown]
  - Urine analysis abnormal [Unknown]
  - Anxiety [Unknown]
  - Dry mouth [Unknown]
  - Arthralgia [Unknown]
  - Muscle spasms [Unknown]
  - Amnesia [Unknown]
  - Pain [Unknown]
  - Bruxism [Unknown]
